FAERS Safety Report 10133454 (Version 1)
Quarter: 2014Q2

REPORT INFORMATION
  Report Type: Spontaneous
  Country: IE (occurrence: IE)
  Receive Date: 20140428
  Receipt Date: 20140428
  Transmission Date: 20141212
  Serious: Yes (Other)
  Sender: FDA-Public Use
  Company Number: IE-WATSON-2014-08086

PATIENT
  Age: 53 Year
  Sex: Female

DRUGS (1)
  1. TAMOXIFEN (UNKNOWN) [Suspect]
     Indication: INVASIVE DUCTAL BREAST CARCINOMA
     Dosage: UNK
     Route: 065

REACTIONS (1)
  - Endometrial stromal sarcoma [Unknown]
